FAERS Safety Report 17523672 (Version 10)
Quarter: 2021Q2

REPORT INFORMATION
  Report Type: Report from Study
  Country: BE (occurrence: BE)
  Receive Date: 20200310
  Receipt Date: 20210602
  Transmission Date: 20210716
  Serious: Yes (Hospitalization, Other)
  Sender: FDA-Public Use
  Company Number: BE-TAKEDA-2020TUS012806

PATIENT
  Sex: Male

DRUGS (34)
  1. LOSARTAN. [Suspect]
     Active Substance: LOSARTAN
     Indication: PRODUCT USED FOR UNKNOWN INDICATION
     Dosage: UNK
     Route: 065
  2. KALIUMCHLORIDE [Concomitant]
     Dosage: UNK
  3. FLAGYL [Concomitant]
     Active Substance: METRONIDAZOLE\METRONIDAZOLE HYDROCHLORIDE
     Dosage: UNK
  4. RAPIFEN                            /00109201/ [Concomitant]
     Active Substance: IBUPROFEN
     Dosage: UNK
  5. EUSAPRIM                           /00086101/ [Concomitant]
     Active Substance: SULFAMETHOXAZOLE\TRIMETHOPRIM
     Dosage: UNK
  6. TAZOBAC [Concomitant]
     Active Substance: PIPERACILLIN SODIUM\TAZOBACTAM SODIUM
     Dosage: UNK
  7. NOBITEN                            /01339101/ [Concomitant]
     Active Substance: NEBIVOLOL
     Dosage: UNK
  8. PIPERACILLIN. [Concomitant]
     Active Substance: PIPERACILLIN SODIUM
     Dosage: UNK
  9. ASAFLOW [Suspect]
     Active Substance: ASPIRIN
     Indication: PRODUCT USED FOR UNKNOWN INDICATION
     Dosage: UNK
     Route: 065
  10. BISOPROLOL [Concomitant]
     Active Substance: BISOPROLOL
     Dosage: UNK
  11. MAGNESIUM SULFATE. [Concomitant]
     Active Substance: MAGNESIUM SULFATE
     Dosage: UNK
  12. AMOCLANE [Concomitant]
     Dosage: UNK
  13. TAVANIC [Concomitant]
     Active Substance: LEVOFLOXACIN
     Dosage: UNK
  14. UNI DIAMICRON [Concomitant]
     Active Substance: GLICLAZIDE
     Dosage: UNK
  15. VEDOLIZUMAB [Suspect]
     Active Substance: VEDOLIZUMAB
     Indication: CROHN^S DISEASE
     Dosage: UNK
     Route: 042
     Dates: start: 20190718, end: 20191031
  16. PANTOPRAZOLE [Concomitant]
     Active Substance: PANTOPRAZOLE
     Dosage: UNK
  17. NATRIUMKLORID [Concomitant]
     Active Substance: SODIUM CHLORIDE
     Dosage: UNK
  18. PRIMPERAN [Concomitant]
     Active Substance: METOCLOPRAMIDE HYDROCHLORIDE
     Dosage: UNK
  19. FRAXIPARINE [Concomitant]
     Active Substance: NADROPARIN CALCIUM
     Dosage: UNK
  20. VANCOMYCIN [Concomitant]
     Active Substance: VANCOMYCIN
     Dosage: UNK
  21. STEOVIT D3 [Concomitant]
     Active Substance: CALCIUM CARBONATE\CHOLECALCIFEROL
     Dosage: UNK
  22. LIPITOR [Concomitant]
     Active Substance: ATORVASTATIN CALCIUM
     Dosage: UNK
  23. BIOGLUCOSAMINE [Concomitant]
     Dosage: UNK
  24. PANTOMED                           /00178901/ [Concomitant]
     Active Substance: DEXPANTHENOL
     Dosage: UNK
  25. INFLIXIMAB [Concomitant]
     Active Substance: INFLIXIMAB
     Dosage: UNK
     Dates: start: 20191203
  26. SOLU?CORTEF [Concomitant]
     Active Substance: HYDROCORTISONE SODIUM SUCCINATE
     Dosage: UNK
  27. MEDROL [Concomitant]
     Active Substance: METHYLPREDNISOLONE
     Dosage: UNK
  28. METFORMINE [Concomitant]
     Active Substance: METFORMIN HYDROCHLORIDE
     Dosage: UNK
  29. AUGMENTIN [Concomitant]
     Active Substance: AMOXICILLIN\CLAVULANATE POTASSIUM
     Dosage: UNK
  30. PLASMALYTE [Concomitant]
     Active Substance: ELECTROLYTES NOS
     Dosage: UNK
  31. TELEBRIX                           /00871501/ [Concomitant]
     Active Substance: IOXITALAMIC ACID
     Dosage: UNK
  32. LEVOFLOXACINE FRESENIUS KABI [Concomitant]
     Dosage: UNK
  33. DORMICUM                           /00036201/ [Concomitant]
     Active Substance: NITRAZEPAM
     Dosage: UNK
  34. KONAKION [Concomitant]
     Active Substance: PHYTONADIONE
     Dosage: UNK

REACTIONS (10)
  - Hypotension [Recovered/Resolved]
  - Device related infection [Recovered/Resolved]
  - Pulmonary embolism [Recovered/Resolved]
  - Renal failure [Not Recovered/Not Resolved]
  - Large intestine infection [Recovered/Resolved]
  - Deep vein thrombosis [Recovered/Resolved]
  - Gastroenteritis [Recovered/Resolved]
  - Fall [Recovered/Resolved]
  - Colitis [Recovered/Resolved with Sequelae]
  - Lip haemorrhage [Recovered/Resolved]

NARRATIVE: CASE EVENT DATE: 20191022
